FAERS Safety Report 26097635 (Version 2)
Quarter: 2025Q4

REPORT INFORMATION
  Report Type: Report from Study
  Country: US (occurrence: US)
  Receive Date: 20251127
  Receipt Date: 20251230
  Transmission Date: 20260117
  Serious: Yes (Other)
  Sender: MALLINCKRODT
  Company Number: US-MALLINCKRODT-MNK202507485

PATIENT
  Age: 62 Year
  Sex: Female

DRUGS (5)
  1. CORTICOTROPIN [Suspect]
     Active Substance: CORTICOTROPIN
     Indication: Exposure keratitis
     Route: 058
  2. ARTIFICIAL TEAR [HYPROMELLOSE] [Concomitant]
     Dosage: UNKNOWN
  3. XDEMVY [Concomitant]
     Active Substance: LOTILANER
     Dosage: UNKNOWN
  4. PREDNISOLONE [Concomitant]
     Active Substance: PREDNISOLONE
     Dosage: UNKNOWN
  5. MIEBO [Concomitant]
     Active Substance: PERFLUOROHEXYLOCTANE
     Dosage: UNKNOWN

REACTIONS (2)
  - Scleritis [Not Recovered/Not Resolved]
  - Oropharyngeal pain [Unknown]
